FAERS Safety Report 4464282-2 (Version None)
Quarter: 2004Q4

REPORT INFORMATION
  Report Type: 
  Country: None (occurrence: None)
  Receive Date: 20041001
  Receipt Date: 20040922
  Transmission Date: 20050328
  Serious: Yes (Other)
  Sender: FDA-Public Use
  Company Number: PHNR2004AU01447

PATIENT
  Age: 47 Year
  Sex: Male

DRUGS (3)
  1. CLOZARIL [Suspect]
     Indication: SCHIZOPHRENIA
     Dosage: 400 MG, QD
     Route: 048
     Dates: start: 19941122
  2. GEMFIBROZIL [Suspect]
     Dosage: 1 G, QD
     Route: 048
     Dates: start: 20030815, end: 20031101
  3. SERTRALINE HCL [Concomitant]
     Route: 048

REACTIONS (5)
  - ANGINA PECTORIS [None]
  - LIPIDS INCREASED [None]
  - MYOCARDIAL ISCHAEMIA [None]
  - NEUTROPENIA [None]
  - TACHYCARDIA [None]
